FAERS Safety Report 16387654 (Version 1)
Quarter: 2019Q2

REPORT INFORMATION
  Report Type: Spontaneous
  Country: US (occurrence: US)
  Receive Date: 20190426
  Receipt Date: 20190426
  Transmission Date: 20190711
  Serious: Yes (Hospitalization)
  Sender: FDA-Public Use
  Company Number: None

PATIENT
  Age: 83 Year
  Sex: Female

DRUGS (11)
  1. PANTOPRAZOLE [Concomitant]
     Active Substance: PANTOPRAZOLE
  2. SYNTHROID [Concomitant]
     Active Substance: LEVOTHYROXINE SODIUM
  3. FERROUS INSULFATE [Concomitant]
  4. LOPERAMIDE [Concomitant]
     Active Substance: LOPERAMIDE
  5. CLINDAMYCIN. [Concomitant]
     Active Substance: CLINDAMYCIN
  6. FUROSEMIDE. [Concomitant]
     Active Substance: FUROSEMIDE
  7. OPSUMIT [Suspect]
     Active Substance: MACITENTAN
     Indication: PULMONARY EMBOLISM
     Route: 048
     Dates: start: 201510
  8. PREDNISONE. [Concomitant]
     Active Substance: PREDNISONE
  9. FLONASE [Concomitant]
     Active Substance: FLUTICASONE PROPIONATE
  10. LORATADINE. [Concomitant]
     Active Substance: LORATADINE
  11. METOPROLOL. [Concomitant]
     Active Substance: METOPROLOL

REACTIONS (5)
  - Epistaxis [None]
  - Swelling [None]
  - Dyspnoea [None]
  - Asthenia [None]
  - Iron deficiency anaemia [None]

NARRATIVE: CASE EVENT DATE: 20190404
